FAERS Safety Report 18492054 (Version 3)
Quarter: 2021Q1

REPORT INFORMATION
  Report Type: Spontaneous
  Country: US (occurrence: US)
  Receive Date: 20201111
  Receipt Date: 20210129
  Transmission Date: 20210419
  Serious: Yes (Other)
  Sender: FDA-Public Use
  Company Number: US-JAZZ-2020-US-014467

PATIENT
  Sex: Male

DRUGS (1)
  1. ZEPZELCA [Suspect]
     Active Substance: LURBINECTEDIN
     Indication: PRODUCT USED FOR UNKNOWN INDICATION
     Dosage: UNK
     Dates: start: 20201007

REACTIONS (4)
  - Metastases to central nervous system [Unknown]
  - Radiation skin injury [Unknown]
  - Ear swelling [Unknown]
  - Erythema [Unknown]

NARRATIVE: CASE EVENT DATE: 20201012
